FAERS Safety Report 5264480-4 (Version None)
Quarter: 2007Q1

REPORT INFORMATION
  Report Type: 
  Country: None (occurrence: None)
  Receive Date: 20070309
  Receipt Date: 20070301
  Transmission Date: 20070707
  Serious: Yes (Other)
  Sender: FDA-Public Use
  Company Number: 2007309791

PATIENT
  Sex: Female

DRUGS (1)
  1. VISINE L.R. [Suspect]
     Dosage: OPHTHALMIC
     Route: 047

REACTIONS (3)
  - CORNEAL ABRASION [None]
  - DRY EYE [None]
  - EYELID FUNCTION DISORDER [None]
